FAERS Safety Report 8736523 (Version 3)
Quarter: 2013Q2

REPORT INFORMATION
  Report Type: Spontaneous
  Country: US (occurrence: US)
  Receive Date: 20120822
  Receipt Date: 20130604
  Transmission Date: 20140414
  Serious: Yes (Life-Threatening, Hospitalization, Disabling, Other)
  Sender: FDA-Public Use
  Company Number: US-BRISTOL-MYERS SQUIBB COMPANY-16854259

PATIENT
  Age: 41 Year
  Sex: Female
  Weight: 60.4 kg

DRUGS (9)
  1. COUMADIN [Suspect]
     Dosage: 8.5MG: MONDAY,WEDNESDAY,FRIDAY?8MG: TUESDAYTHRUSDAY,SATURDAY,SUNDAY
     Dates: start: 1991
  2. TUMS [Concomitant]
  3. FOLATE [Concomitant]
  4. VITAMIN A AND D [Concomitant]
  5. VITAMIN B6 [Concomitant]
  6. FOSAMAX [Concomitant]
     Dosage: EVERY FRIDAY.
     Route: 048
  7. FERROUS SULFATE [Concomitant]
  8. MAXITROL [Concomitant]
     Dosage: EYEDROPS.?2 DROPS TO THE LEFT EYE TWICE DAILY
  9. ASPIRIN [Concomitant]
     Route: 048

REACTIONS (12)
  - Subdural haematoma [Unknown]
  - Hypercoagulation [Unknown]
  - Thrombophlebitis [Unknown]
  - Haemolysis [Unknown]
  - Peripheral ischaemia [Unknown]
  - Thrombocytopenia [Unknown]
  - Anaemia of chronic disease [Unknown]
  - Vertigo [Unknown]
  - International normalised ratio increased [Unknown]
  - Urinary tract infection [Unknown]
  - Product quality issue [Unknown]
  - Nervous system disorder [Unknown]
